FAERS Safety Report 18289608 (Version 1)
Quarter: 2020Q3

REPORT INFORMATION
  Report Type: Spontaneous
  Country: US (occurrence: US)
  Receive Date: 20200921
  Receipt Date: 20200921
  Transmission Date: 20201103
  Serious: Yes (Hospitalization)
  Sender: FDA-Public Use
  Company Number: None

PATIENT
  Age: 73 Year
  Sex: Male
  Weight: 61.69 kg

DRUGS (2)
  1. EASYPUMP ELASTOMERIC INFUSION PUMP [Suspect]
     Active Substance: DEVICE
  2. FLUOROURACIL. [Suspect]
     Active Substance: FLUOROURACIL

REACTIONS (4)
  - Incorrect drug administration rate [None]
  - Rectal haemorrhage [None]
  - Drug delivery system malfunction [None]
  - Platelet count decreased [None]
